FAERS Safety Report 6148202-0 (Version None)
Quarter: 2009Q2

REPORT INFORMATION
  Report Type: 
  Country: None (occurrence: None)
  Receive Date: 20090408
  Receipt Date: 20090326
  Transmission Date: 20091009
  Serious: Yes (Hospitalization)
  Sender: FDA-Public Use
  Company Number: US-ROCHE-616320

PATIENT
  Sex: Female
  Weight: 98.4 kg

DRUGS (3)
  1. CAPECITABINE [Suspect]
     Dosage: TOOK 4 TABLETS DAILY
     Route: 065
     Dates: start: 20070104
  2. CAPECITABINE [Suspect]
     Dosage: FINISHED ONE WEEK OF CAPECITABINE.
     Route: 065
  3. ELOXATIN [Suspect]
     Indication: DRUG USE FOR UNKNOWN INDICATION
     Route: 042

REACTIONS (5)
  - CHILLS [None]
  - HEADACHE [None]
  - PLEURAL EFFUSION [None]
  - PYREXIA [None]
  - THROMBOSIS [None]
